FAERS Safety Report 6435021-0 (Version None)
Quarter: 2009Q4

REPORT INFORMATION
  Report Type: 
  Country: None (occurrence: None)
  Receive Date: 20091110
  Receipt Date: 20091104
  Transmission Date: 20100525
  Serious: Yes (Other)
  Sender: FDA-Public Use
  Company Number: PHEH2009US13023

PATIENT
  Sex: Female

DRUGS (10)
  1. RECLAST [Suspect]
     Dosage: UNK
     Dates: start: 20090923, end: 20090923
  2. AMLODIPINE [Concomitant]
     Dosage: 5 MG, UNK
  3. PRAVASTATIN [Concomitant]
     Dosage: 40 MG, UNK
  4. LEVOTHYROXINE SODIUM [Concomitant]
     Dosage: 75 MG, UNK
  5. PLAVIX [Concomitant]
     Dosage: 75 MG, UNK
  6. METOPROLOL SUCCINATE [Concomitant]
     Dosage: 100 MG, UNK
  7. OMEPRAZOLE [Concomitant]
     Dosage: 20 MG, UNK
  8. ENALAPRIL [Concomitant]
  9. JANUVIA [Concomitant]
     Dosage: 100 MG, UNK
  10. ASPIRIN [Concomitant]

REACTIONS (8)
  - ASTHENIA [None]
  - BACK PAIN [None]
  - CORNEAL STRIAE [None]
  - EYE PAIN [None]
  - INFLUENZA LIKE ILLNESS [None]
  - IRITIS [None]
  - PAIN IN EXTREMITY [None]
  - VISUAL IMPAIRMENT [None]
